FAERS Safety Report 17798512 (Version 1)
Quarter: 2020Q2

REPORT INFORMATION
  Report Type: Spontaneous
  Country: GB (occurrence: GB)
  Receive Date: 20200518
  Receipt Date: 20200518
  Transmission Date: 20200714
  Serious: Yes (Other)
  Sender: FDA-Public Use
  Company Number: GB-MYLANLABS-2020M1047729

PATIENT
  Age: 83 Year
  Sex: Female
  Weight: 79 kg

DRUGS (6)
  1. LISINOPRIL. [Suspect]
     Active Substance: LISINOPRIL
     Indication: PRODUCT USED FOR UNKNOWN INDICATION
     Dosage: 10 MILLIGRAM
     Dates: start: 20200420
  2. VOLTAROL [Concomitant]
     Active Substance: DICLOFENAC SODIUM
     Dosage: APPLY THREE OR FOUR TIMES A DAY.
     Dates: start: 20200122, end: 20200305
  3. COCODAMOL [Concomitant]
     Active Substance: ACETAMINOPHEN\CODEINE PHOSPHATE
     Dosage: ONE OR TWO TO BE TAKEN FOUR TIMES A DAY
     Dates: start: 20200122, end: 20200220
  4. AMLODIPINE [Concomitant]
     Active Substance: AMLODIPINE BESYLATE
     Dosage: 1 DOSAGE FORM, QD
     Dates: start: 20190726, end: 20200406
  5. LANSOPRAZOLE. [Concomitant]
     Active Substance: LANSOPRAZOLE
     Dosage: ONE OR TWO TO BE TAKEN EACH MORNING.
     Dates: start: 20190115, end: 20200406
  6. PROCHLORPERAZINE. [Concomitant]
     Active Substance: PROCHLORPERAZINE
     Dosage: 3 DOSAGE FORM, QD
     Dates: start: 20200225, end: 20200306

REACTIONS (1)
  - Swollen tongue [Recovered/Resolved]

NARRATIVE: CASE EVENT DATE: 20200420
